FAERS Safety Report 19124005 (Version 1)
Quarter: 2021Q2

REPORT INFORMATION
  Report Type: Report from Study
  Country: CN (occurrence: CN)
  Receive Date: 20210412
  Receipt Date: 20210412
  Transmission Date: 20210717
  Serious: Yes (Other)
  Sender: FDA-Public Use
  Company Number: CN-JNJFOC-20200634226

PATIENT

DRUGS (26)
  1. MOXIFLOXACIN. [Suspect]
     Active Substance: MOXIFLOXACIN
     Indication: TUBERCULOSIS
     Route: 065
  2. PASINIAZID [Suspect]
     Active Substance: PASINIAZID
     Indication: TUBERCULOSIS
     Route: 065
  3. PYRAZINAMIDE. [Suspect]
     Active Substance: PYRAZINAMIDE
     Indication: TUBERCULOSIS
     Route: 065
  4. CLOFAZIMINE [Suspect]
     Active Substance: CLOFAZIMINE
     Indication: TUBERCULOSIS
     Route: 065
  5. RIFAMPIN. [Suspect]
     Active Substance: RIFAMPIN
     Indication: TUBERCULOSIS
     Route: 065
  6. CAPREOMYCIN [Suspect]
     Active Substance: CAPREOMYCIN
     Indication: TUBERCULOSIS
     Route: 065
  7. ETHAMBUTOL [Suspect]
     Active Substance: ETHAMBUTOL HYDROCHLORIDE
     Indication: TUBERCULOSIS
     Route: 065
  8. CLARITHROMYCIN. [Suspect]
     Active Substance: CLARITHROMYCIN
     Indication: TUBERCULOSIS
     Route: 065
  9. LEVOFLOXACIN. [Suspect]
     Active Substance: LEVOFLOXACIN
     Indication: TUBERCULOSIS
     Route: 065
  10. PARA?AMINOSALICYLIC ACID [Suspect]
     Active Substance: AMINOSALICYLIC ACID
     Indication: TUBERCULOSIS
     Route: 065
  11. IMIPENEM [Suspect]
     Active Substance: IMIPENEM
     Indication: TUBERCULOSIS
     Route: 065
  12. GATIFLOXACIN. [Suspect]
     Active Substance: GATIFLOXACIN
     Indication: TUBERCULOSIS
     Route: 065
  13. TERIZIDONE [Suspect]
     Active Substance: TERIZIDONE
     Indication: TUBERCULOSIS
     Route: 065
  14. MEROPENEM. [Suspect]
     Active Substance: MEROPENEM
     Indication: TUBERCULOSIS
     Route: 065
  15. PROTIONAMIDE [Suspect]
     Active Substance: PROTIONAMIDE
     Indication: TUBERCULOSIS
     Route: 065
  16. CYCLOSERINE. [Suspect]
     Active Substance: CYCLOSERINE
     Indication: TUBERCULOSIS
     Route: 065
  17. RIFABUTIN. [Suspect]
     Active Substance: RIFABUTIN
     Indication: TUBERCULOSIS
     Route: 065
  18. BEDAQUILINE [Suspect]
     Active Substance: BEDAQUILINE
     Indication: TUBERCULOSIS
     Dosage: FOR 2 WEEKS
     Route: 048
  19. AMIKACIN. [Suspect]
     Active Substance: AMIKACIN
     Indication: TUBERCULOSIS
     Route: 065
  20. STREPTOMYCIN [Suspect]
     Active Substance: STREPTOMYCIN SULFATE
     Indication: TUBERCULOSIS
     Route: 065
  21. BEDAQUILINE [Suspect]
     Active Substance: BEDAQUILINE
     Route: 048
  22. CILASTATIN [Suspect]
     Active Substance: CILASTATIN
     Indication: TUBERCULOSIS
     Route: 065
  23. ISONIAZID. [Suspect]
     Active Substance: ISONIAZID
     Indication: TUBERCULOSIS
     Route: 065
  24. OFLOXACIN. [Suspect]
     Active Substance: OFLOXACIN
     Indication: TUBERCULOSIS
     Route: 065
  25. LINEZOLID. [Suspect]
     Active Substance: LINEZOLID
     Indication: TUBERCULOSIS
     Route: 065
  26. AMOXICILLIN;CLAVULANATE POTASSIUM [Suspect]
     Active Substance: AMOXICILLIN\CLAVULANATE POTASSIUM
     Indication: TUBERCULOSIS
     Route: 065

REACTIONS (4)
  - Gastrointestinal disorder [Unknown]
  - Adverse event [Unknown]
  - Electrocardiogram QT prolonged [Unknown]
  - Hepatotoxicity [Unknown]
